FAERS Safety Report 20219077 (Version 1)
Quarter: 2021Q4

REPORT INFORMATION
  Report Type: Spontaneous
  Country: RU (occurrence: None)
  Receive Date: 20211222
  Receipt Date: 20211222
  Transmission Date: 20220303
  Serious: Yes (Other)
  Sender: FDA-Public Use
  Company Number: RU-ROCHE-2979718

PATIENT
  Age: 74 Year

DRUGS (1)
  1. TECENTRIQ [Suspect]
     Active Substance: ATEZOLIZUMAB
     Indication: Product used for unknown indication
     Route: 065

REACTIONS (5)
  - Diplopia [Unknown]
  - Eyelid ptosis [Unknown]
  - Myasthenia gravis [Unknown]
  - Immune-mediated hepatitis [Unknown]
  - Myocarditis [Unknown]
